FAERS Safety Report 6173141-9 (Version None)
Quarter: 2009Q2

REPORT INFORMATION
  Report Type: 
  Country: None (occurrence: None)
  Receive Date: 20090430
  Receipt Date: 20090417
  Transmission Date: 20091009
  Serious: Yes (Other)
  Sender: FDA-Public Use
  Company Number: JP-PFIZER INC-2009185628

PATIENT

DRUGS (1)
  1. GABAPEN [Suspect]
     Indication: EPILEPSY
     Dosage: UNK
     Route: 048

REACTIONS (5)
  - EPILEPSY [None]
  - MIDDLE INSOMNIA [None]
  - MYOCARDIAL INFARCTION [None]
  - NASAL SEPTUM DISORDER [None]
  - SOMNOLENCE [None]
